FAERS Safety Report 7952913-1 (Version None)
Quarter: 2011Q4

REPORT INFORMATION
  Report Type: 
  Country: None (occurrence: None)
  Receive Date: 20111201
  Receipt Date: 20111126
  Transmission Date: 20120403
  Serious: No
  Sender: FDA-Public Use
  Company Number: US-CEPHALON-US010502

PATIENT

DRUGS (1)
  1. PROVIGIL [Suspect]

REACTIONS (1)
  - INTESTINAL OBSTRUCTION [None]
